FAERS Safety Report 24033670 (Version 1)
Quarter: 2024Q3

REPORT INFORMATION
  Report Type: Other
  Country: US (occurrence: US)
  Receive Date: 20240701
  Receipt Date: 20240701
  Transmission Date: 20241017
  Serious: Yes (Death)
  Sender: BIONPHARMA
  Company Number: US-Bion-013347

PATIENT
  Age: 3 Year
  Sex: Female

DRUGS (2)
  1. AZITHROMYCIN [Suspect]
     Active Substance: AZITHROMYCIN
     Indication: Neonatal respiratory distress syndrome
  2. HYDROXYCHLOROQUINE [Concomitant]
     Active Substance: HYDROXYCHLOROQUINE
     Indication: Neonatal respiratory distress syndrome

REACTIONS (1)
  - Drug ineffective for unapproved indication [Fatal]
